FAERS Safety Report 25859006 (Version 1)
Quarter: 2025Q3

REPORT INFORMATION
  Report Type: Spontaneous
  Country: US (occurrence: US)
  Receive Date: 20250929
  Receipt Date: 20250929
  Transmission Date: 20251020
  Serious: No
  Sender: MYLAN
  Company Number: US-MYLANLABS-2025M1078404

PATIENT
  Age: 56 Year
  Sex: Female
  Weight: 68.04 kg

DRUGS (2)
  1. ESTRADIOL TRANSDERMAL SYSTEM [Suspect]
     Active Substance: ESTRADIOL
     Indication: Menopause
     Dosage: 0.1 MILLIGRAM, 3XW (THREE TIMES EACH WEEK)
  2. ESTROGENS [Concomitant]
     Active Substance: ESTROGENS

REACTIONS (3)
  - Palpitations [Recovered/Resolved]
  - Epistaxis [Recovered/Resolved]
  - Product substitution issue [Unknown]
